FAERS Safety Report 10714775 (Version 1)
Quarter: 2015Q1

REPORT INFORMATION
  Report Type: Spontaneous
  Country: US (occurrence: US)
  Receive Date: 20150115
  Receipt Date: 20150115
  Transmission Date: 20150721
  Serious: Yes (Death, Other)
  Sender: FDA-Public Use
  Company Number: US-NAPPMUNDI-USA-2014-0117173

PATIENT
  Age: 30 Year
  Sex: Male

DRUGS (1)
  1. DILAUDID [Suspect]
     Active Substance: HYDROMORPHONE HYDROCHLORIDE
     Indication: DRUG ABUSE
     Dosage: UNKNOWN

REACTIONS (5)
  - Loss of consciousness [Unknown]
  - Abnormal behaviour [Unknown]
  - Overdose [Fatal]
  - Drug abuse [Unknown]
  - Respiratory arrest [Unknown]
